FAERS Safety Report 6632083-2 (Version None)
Quarter: 2010Q1

REPORT INFORMATION
  Report Type: 
  Country: None (occurrence: None)
  Receive Date: 20100312
  Receipt Date: 20090615
  Transmission Date: 20100710
  Serious: No
  Sender: FDA-Public Use
  Company Number: US-BIOGENIDEC-2009BI018236

PATIENT
  Sex: Female

DRUGS (2)
  1. AVONEX [Suspect]
     Indication: MULTIPLE SCLEROSIS
     Route: 030
     Dates: start: 20040501
  2. KLONOPIN [Concomitant]
     Indication: NERVOUS SYSTEM DISORDER
     Route: 048

REACTIONS (4)
  - BACK PAIN [None]
  - COUGH [None]
  - INJECTION SITE HAEMATOMA [None]
  - STRESS URINARY INCONTINENCE [None]
